FAERS Safety Report 9098016 (Version 2)
Quarter: 2013Q3

REPORT INFORMATION
  Report Type: Spontaneous
  Country: GR (occurrence: GR)
  Receive Date: 20130212
  Receipt Date: 20130705
  Transmission Date: 20140515
  Serious: Yes (Other)
  Sender: FDA-Public Use
  Company Number: GR-ROCHE-1189021

PATIENT
  Age: 74 Year
  Sex: Female

DRUGS (3)
  1. XELODA [Suspect]
     Indication: BREAST CANCER METASTATIC
     Route: 065
     Dates: start: 201210
  2. XELODA [Suspect]
     Route: 065
  3. AKINETON [Concomitant]
     Indication: PARKINSON^S DISEASE

REACTIONS (5)
  - Fatigue [Recovering/Resolving]
  - Gait disturbance [Recovering/Resolving]
  - Amnesia [Recovered/Resolved]
  - Rash pustular [Not Recovered/Not Resolved]
  - Erythema [Not Recovered/Not Resolved]
